FAERS Safety Report 20213264 (Version 1)
Quarter: 2021Q4

REPORT INFORMATION
  Report Type: Report from Study
  Country: US (occurrence: US)
  Receive Date: 20211221
  Receipt Date: 20211221
  Transmission Date: 20220303
  Serious: Yes (Hospitalization, Other)
  Sender: FDA-Public Use
  Company Number: ENDG21-08074

PATIENT
  Age: 75 Year
  Sex: Female
  Weight: 44 kg

DRUGS (7)
  1. TREPROSTINIL [Suspect]
     Active Substance: TREPROSTINIL
     Indication: Pulmonary arterial hypertension
     Dosage: UNK, (CONTINUOUS), IV DRIP
     Route: 041
     Dates: start: 202111, end: 202111
  2. TYVASO [Suspect]
     Active Substance: TREPROSTINIL
     Indication: Pulmonary arterial hypertension
     Dosage: 0.6 NG/ML, UNKNOWN
     Route: 050
     Dates: start: 20200219
  3. TYVASO [Suspect]
     Active Substance: TREPROSTINIL
     Dosage: 54 TO 72 ?G, (9-12 BREATHS) QID (INHALATION)
     Route: 050
  4. TYVASO [Suspect]
     Active Substance: TREPROSTINIL
     Dosage: 54-108 ?G, (9-18 BREATHS) QID, INHALATION
     Route: 050
  5. TYVASO [Suspect]
     Active Substance: TREPROSTINIL
     Dosage: 84 ?G, 14 BREATHS, QID (INHALATION)
     Route: 050
     Dates: start: 202111
  6. TADALAFIL [Concomitant]
     Active Substance: TADALAFIL
     Indication: Product used for unknown indication
     Dosage: UNK UNKNOWN, UNKNOWN
     Route: 065
  7. XARELTO [Concomitant]
     Active Substance: RIVAROXABAN
     Indication: Product used for unknown indication
     Dosage: UNK UNKNOWN, UNKNOWN
     Route: 065

REACTIONS (3)
  - Pulmonary hypertension [Unknown]
  - Treatment failure [Unknown]
  - Product substitution issue [Unknown]

NARRATIVE: CASE EVENT DATE: 20211101
